FAERS Safety Report 8766440 (Version 1)
Quarter: 2012Q4

REPORT INFORMATION
  Report Type: 
  Country: BR (occurrence: BR)
  Receive Date: 20120904
  Receipt Date: 20120904
  Transmission Date: 20130627
  Serious: Yes (Death)
  Sender: FDA-Public Use
  Company Number: BR-ROCHE-1112956

PATIENT
  Sex: Male

DRUGS (3)
  1. AVASTIN [Suspect]
     Indication: LUNG CANCER METASTATIC
     Dates: start: 20080828, end: 20090510
  2. TAXOL [Concomitant]
  3. CARBOPLATIN [Concomitant]

REACTIONS (1)
  - Death [Fatal]
